FAERS Safety Report 24688032 (Version 5)
Quarter: 2025Q3

REPORT INFORMATION
  Report Type: Spontaneous
  Country: US (occurrence: US)
  Receive Date: 20241202
  Receipt Date: 20250717
  Transmission Date: 20251021
  Serious: No
  Sender: SANOFI AVENTIS
  Company Number: US-SA-2024SA351049

PATIENT
  Age: 64 Year
  Sex: Female
  Weight: 100 kg

DRUGS (3)
  1. DUPIXENT [Suspect]
     Active Substance: DUPILUMAB
     Indication: Asthma
     Dosage: 300 MG, QOW
     Route: 058
     Dates: start: 202404
  2. CUVITRU [Suspect]
     Active Substance: HUMAN IMMUNOGLOBULIN G
  3. PREGABALIN [Concomitant]
     Active Substance: PREGABALIN

REACTIONS (4)
  - Pain [Unknown]
  - Infusion site pain [Unknown]
  - Weight increased [Unknown]
  - Injection site pain [Unknown]

NARRATIVE: CASE EVENT DATE: 20240101
